FAERS Safety Report 9104862 (Version 1)
Quarter: 2013Q1

REPORT INFORMATION
  Report Type: Spontaneous
  Country: US (occurrence: US)
  Receive Date: 20130220
  Receipt Date: 20130220
  Transmission Date: 20140127
  Serious: No
  Sender: FDA-Public Use
  Company Number: US-BAYER-2013-019732

PATIENT
  Age: 81 Year
  Sex: Female
  Weight: 57 kg

DRUGS (5)
  1. ALEVE LIQUID GELS [Suspect]
     Dosage: 2 DF, BID
     Route: 048
     Dates: start: 20130126, end: 201302
  2. ALEVE CAPLET/TABLET,MIDOL EXTENDED RELIEF CAPLET [Suspect]
     Dosage: 2 DF, BID
     Route: 048
     Dates: start: 201302
  3. LIPITOR [Concomitant]
  4. MULTIVITAMIN [Concomitant]
  5. PREVACID [Concomitant]

REACTIONS (1)
  - Overdose [None]
